FAERS Safety Report 8315183-0 (Version None)
Quarter: 2012Q2

REPORT INFORMATION
  Report Type: 
  Country: None (occurrence: None)
  Receive Date: 20120426
  Receipt Date: 20120417
  Transmission Date: 20120825
  Serious: Yes (Hospitalization)
  Sender: FDA-Public Use
  Company Number: FR-GLAXOSMITHKLINE-B0796029A

PATIENT
  Sex: Female

DRUGS (10)
  1. HEMOFILTRATION [Concomitant]
     Dates: start: 20111112
  2. KEPPRA [Suspect]
     Indication: PRODUCT USED FOR UNKNOWN INDICATION
     Dosage: 500MG TWICE PER DAY
     Route: 042
     Dates: start: 20111220, end: 20111221
  3. NICARDIPINE HCL [Concomitant]
     Route: 042
     Dates: start: 20111206, end: 20120108
  4. HEPARINE CALCIQUE [Concomitant]
     Route: 058
     Dates: start: 20111019, end: 20120108
  5. AMIKACIN [Suspect]
     Indication: PRODUCT USED FOR UNKNOWN INDICATION
     Dosage: 1G TWICE PER DAY
     Route: 042
     Dates: start: 20111219, end: 20111220
  6. CLAFORAN [Concomitant]
     Indication: MENINGITIS BACTERIAL
     Dates: start: 20111029
  7. CEFTAZIDIME [Suspect]
     Indication: PRODUCT USED FOR UNKNOWN INDICATION
     Dosage: 1G THREE TIMES PER DAY
     Route: 042
     Dates: start: 20111218, end: 20111221
  8. PAROXETINE HYDROCHLORIDE [Suspect]
     Indication: PRODUCT USED FOR UNKNOWN INDICATION
     Dosage: 20MG PER DAY
     Route: 048
     Dates: start: 20111206, end: 20111221
  9. LASIX [Suspect]
     Indication: PRODUCT USED FOR UNKNOWN INDICATION
     Dosage: 1G FOUR TIMES PER DAY
     Route: 042
     Dates: start: 20111208, end: 20111218
  10. FOSFOMYCINE [Concomitant]
     Indication: MENINGITIS BACTERIAL
     Dates: start: 20111029

REACTIONS (1)
  - TOXIC SKIN ERUPTION [None]
